FAERS Safety Report 6795984-0 (Version None)
Quarter: 2010Q2

REPORT INFORMATION
  Report Type: 
  Country: None (occurrence: None)
  Receive Date: 20100625
  Receipt Date: 20100612
  Transmission Date: 20101027
  Serious: Yes (Other)
  Sender: FDA-Public Use
  Company Number: PHHY2010BR38440

PATIENT
  Sex: Male

DRUGS (1)
  1. DIOVAN HCT [Suspect]
     Dosage: 160/12.5 MG
     Route: 048

REACTIONS (4)
  - CEREBELLAR ISCHAEMIA [None]
  - HEADACHE [None]
  - HEMIPARESIS [None]
  - MEMORY IMPAIRMENT [None]
